FAERS Safety Report 24664061 (Version 1)
Quarter: 2024Q4

REPORT INFORMATION
  Report Type: Spontaneous
  Country: GB (occurrence: GB)
  Receive Date: 20241126
  Receipt Date: 20241126
  Transmission Date: 20250115
  Serious: Yes (Other)
  Sender: AUROBINDO
  Company Number: GB-MHRA-TPP53559735C7544046YC1731675729561

PATIENT
  Age: 41 Year
  Sex: Male
  Weight: 108 kg

DRUGS (3)
  1. DULOXETINE [Suspect]
     Active Substance: DULOXETINE
     Indication: Ill-defined disorder
     Dosage: UNK
     Route: 065
     Dates: start: 20241115
  2. DULOXETINE [Concomitant]
     Active Substance: DULOXETINE
     Indication: Ill-defined disorder
     Dosage: UNK (INITIALLY ONCE DAILY - CAN INCREASE TO TWICE DA.)
     Route: 065
     Dates: start: 20240821, end: 20241115
  3. FLUOXETINE [Concomitant]
     Active Substance: FLUOXETINE HYDROCHLORIDE
     Indication: Ill-defined disorder
     Dosage: UNK (TAKE HALF TABLET DAILY FOR A WEEK, THEN ONE TAB)
     Route: 065
     Dates: start: 20241115

REACTIONS (1)
  - Hallucination, auditory [Recovering/Resolving]

NARRATIVE: CASE EVENT DATE: 20241115
